FAERS Safety Report 5802974-0 (Version None)
Quarter: 2008Q2

REPORT INFORMATION
  Report Type: 
  Country: None (occurrence: None)
  Receive Date: 20080626
  Receipt Date: 20080204
  Transmission Date: 20081010
  Serious: No
  Sender: FDA-Public Use
  Company Number: US-CVT-080011

PATIENT
  Age: 72 Year
  Sex: Female

DRUGS (9)
  1. RANEXA [Suspect]
     Indication: ANGINA PECTORIS
     Dosage: 500 MG, BID, ORAL ; 1000 MG, BID, ORAL ; 500 MG, BID, ORAL
     Route: 048
     Dates: start: 20070101, end: 20070501
  2. RANEXA [Suspect]
     Indication: ANGINA PECTORIS
     Dosage: 500 MG, BID, ORAL ; 1000 MG, BID, ORAL ; 500 MG, BID, ORAL
     Route: 048
     Dates: start: 20070501, end: 20070601
  3. RANEXA [Suspect]
     Indication: ANGINA PECTORIS
     Dosage: 500 MG, BID, ORAL ; 1000 MG, BID, ORAL ; 500 MG, BID, ORAL
     Route: 048
     Dates: start: 20070601
  4. COREG [Concomitant]
  5. COZAAR [Concomitant]
  6. NORVASC /00972401/ (AMLODIPINE) [Concomitant]
  7. LORAZEPAM [Concomitant]
  8. PLAVIX [Concomitant]
  9. CRESTOR [Concomitant]

REACTIONS (7)
  - CHEST PAIN [None]
  - CLUSTER HEADACHE [None]
  - DEHYDRATION [None]
  - LABILE BLOOD PRESSURE [None]
  - LETHARGY [None]
  - POLLAKIURIA [None]
  - RENAL PAIN [None]
